FAERS Safety Report 6179875-4 (Version None)
Quarter: 2009Q2

REPORT INFORMATION
  Report Type: 
  Country: None (occurrence: None)
  Receive Date: 20090505
  Receipt Date: 20090423
  Transmission Date: 20091009
  Serious: Yes (Other)
  Sender: FDA-Public Use
  Company Number: GB-JNJFOC-20090500053

PATIENT
  Age: 56 Year
  Sex: Female

DRUGS (2)
  1. TRAMADOL HYDROCHLORIDE [Suspect]
     Indication: MUSCULOSKELETAL PAIN
     Route: 048
  2. CHOLESTYRAMINE [Concomitant]

REACTIONS (3)
  - EXOPHTHALMOS [None]
  - EYELID RETRACTION [None]
  - LID LAG [None]
